FAERS Safety Report 5956717-0 (Version None)
Quarter: 2008Q4

REPORT INFORMATION
  Report Type: 
  Country: None (occurrence: None)
  Receive Date: 20081118
  Receipt Date: 20081104
  Transmission Date: 20090506
  Serious: Yes (Hospitalization, Other)
  Sender: FDA-Public Use
  Company Number: US-ELI_LILLY_AND_COMPANY-US200811001185

PATIENT
  Sex: Female

DRUGS (11)
  1. FORTEO [Suspect]
     Indication: OSTEOPOROSIS
     Dosage: 20 UG, DAILY (1/D)
  2. FORTEO [Suspect]
  3. ISOSORBIDE [Concomitant]
     Dosage: 30 MG, DAILY (1/D)
  4. FUROSEMIDE [Concomitant]
     Dosage: 20 MG, DAILY (1/D)
  5. LISINOPRIL [Concomitant]
     Dosage: 20 MG, DAILY (1/D)
  6. ZETIA [Concomitant]
     Dosage: 10 MG, DAILY (1/D)
  7. SYNTHROID [Concomitant]
     Dosage: 150 UG, DAILY (1/D)
  8. OXYGEN [Concomitant]
     Dosage: UNK, AS NEEDED
  9. SERTRALINE [Concomitant]
     Dosage: 100 MG, DAILY (1/D)
  10. HUMALOG [Concomitant]
     Dosage: SLIDING SCALE
  11. LANTUS [Concomitant]
     Dosage: SLIDING SCALE

REACTIONS (8)
  - FEMUR FRACTURE [None]
  - GAIT DISTURBANCE [None]
  - INFECTION [None]
  - INTESTINAL OPERATION [None]
  - MALAISE [None]
  - MEMORY IMPAIRMENT [None]
  - POLYP [None]
  - STAPHYLOCOCCAL INFECTION [None]
